FAERS Safety Report 19653403 (Version 1)
Quarter: 2021Q3

REPORT INFORMATION
  Report Type: Spontaneous
  Country: US (occurrence: US)
  Receive Date: 20210803
  Receipt Date: 20210803
  Transmission Date: 20211014
  Serious: No
  Sender: FDA-Public Use
  Company Number: US-BIODELIVERY SCIENCES INTERNATIONAL-2021BDSI0228

PATIENT
  Age: 72 Year
  Sex: Female

DRUGS (8)
  1. BUPRENORPHINE. [Suspect]
     Active Substance: BUPRENORPHINE
     Route: 002
  2. BUPRENORPHINE. [Suspect]
     Active Substance: BUPRENORPHINE
     Route: 002
  3. BUPRENORPHINE. [Suspect]
     Active Substance: BUPRENORPHINE
     Route: 002
  4. OXYCODONE [Concomitant]
     Active Substance: OXYCODONE
     Indication: PAIN
     Dosage: UNKNOWN, UNKNOWN
     Route: 065
  5. BUPRENORPHINE. [Suspect]
     Active Substance: BUPRENORPHINE
     Indication: PAIN
     Route: 002
  6. BUPRENORPHINE. [Suspect]
     Active Substance: BUPRENORPHINE
     Route: 002
  7. BUPRENORPHINE. [Suspect]
     Active Substance: BUPRENORPHINE
     Route: 002
     Dates: start: 2020
  8. BUPRENORPHINE. [Suspect]
     Active Substance: BUPRENORPHINE
     Route: 002

REACTIONS (4)
  - Therapeutic response increased [Unknown]
  - Product size issue [Unknown]
  - Product identification number issue [Unknown]
  - Drug ineffective [Unknown]

NARRATIVE: CASE EVENT DATE: 2020
